FAERS Safety Report 5067001-4 (Version None)
Quarter: 2006Q3

REPORT INFORMATION
  Report Type: 
  Country: None (occurrence: None)
  Receive Date: 20060726
  Receipt Date: 20060713
  Transmission Date: 20061208
  Serious: Yes (Hospitalization)
  Sender: FDA-Public Use
  Company Number: 224108

PATIENT
  Age: 56 Year
  Sex: Female

DRUGS (14)
  1. AVASTIN [Suspect]
     Indication: LUNG NEOPLASM MALIGNANT
     Dosage: 1415 MG, INTRAVENOUS
     Route: 042
     Dates: start: 20060316, end: 20060316
  2. ALIMTA [Suspect]
     Indication: LUNG NEOPLASM MALIGNANT
     Dosage: 1050 MG, INTRAVENOUS
     Route: 042
     Dates: start: 20060316
  3. CARBOPLATIN [Suspect]
     Indication: LUNG NEOPLASM MALIGNANT
     Dosage: 500 MG, INTRAVENOUS
     Route: 042
  4. ZELNORM [Concomitant]
  5. NEXIUM [Concomitant]
  6. KLONOPIN [Concomitant]
  7. EMEND [Concomitant]
  8. DILAUDID [Concomitant]
  9. MOTRIN [Concomitant]
  10. ZOFRAN [Concomitant]
  11. SENNA (SENNA) [Concomitant]
  12. MIRALAX [Concomitant]
  13. FOLATE (FOLATE SODIUM) [Concomitant]
  14. DARVOCET(ACETAMINOPHEN, PROPOXYPHENE NAPYSYLATE) [Concomitant]

REACTIONS (27)
  - ADRENAL MASS [None]
  - ANAEMIA [None]
  - BLOOD CREATININE INCREASED [None]
  - BLOOD GLUCOSE INCREASED [None]
  - BLOOD PRESSURE INCREASED [None]
  - BONE SCAN ABNORMAL [None]
  - BRONCHITIS [None]
  - CHILLS [None]
  - DECREASED APPETITE [None]
  - DEHYDRATION [None]
  - DIABETES INSIPIDUS [None]
  - DISEASE PROGRESSION [None]
  - EATING DISORDER [None]
  - FATIGUE [None]
  - HAEMATOCRIT DECREASED [None]
  - HAEMOGLOBIN DECREASED [None]
  - HEART RATE INCREASED [None]
  - LACTOBACILLUS INFECTION [None]
  - METASTASES TO ADRENALS [None]
  - METASTASES TO BONE [None]
  - METASTASES TO LIVER [None]
  - MUSCULOSKELETAL CHEST PAIN [None]
  - PLEURITIC PAIN [None]
  - PYREXIA [None]
  - RED BLOOD CELL COUNT DECREASED [None]
  - RENAL FAILURE ACUTE [None]
  - RESPIRATORY RATE INCREASED [None]
